FAERS Safety Report 8991367 (Version 1)
Quarter: 2012Q4

REPORT INFORMATION
  Report Type: 
  Country: FR (occurrence: FR)
  Receive Date: 20121230
  Receipt Date: 20121230
  Transmission Date: 20130627
  Serious: Yes (Other)
  Sender: FDA-Public Use
  Company Number: FR-US-EMD SERONO, INC.-7183061

PATIENT
  Age: 49 Year
  Sex: Female

DRUGS (2)
  1. REBIF [Suspect]
     Indication: MULTIPLE SCLEROSIS
     Route: 058
     Dates: start: 20120309, end: 20120917
  2. REBIF [Suspect]
     Route: 058
     Dates: start: 20120917

REACTIONS (6)
  - Loss of consciousness [Recovering/Resolving]
  - Vertigo [Not Recovered/Not Resolved]
  - Flushing [Recovering/Resolving]
  - Orthostatic hypotension [Not Recovered/Not Resolved]
  - Malaise [Recovering/Resolving]
  - Nausea [Recovered/Resolved]
